FAERS Safety Report 6637664-8 (Version None)
Quarter: 2010Q1

REPORT INFORMATION
  Report Type: 
  Country: None (occurrence: None)
  Receive Date: 20100317
  Receipt Date: 20100302
  Transmission Date: 20100710
  Serious: Yes (Death, Other)
  Sender: FDA-Public Use
  Company Number: US-TYCO HEALTHCARE/MALLINCKRODT-T201000724

PATIENT
  Age: 31 Year
  Sex: Male

DRUGS (2)
  1. FENTANYL [Suspect]
     Dosage: 75 MCG/HOUR TRANSDERMAL PATCH
  2. FENTANYL [Suspect]
     Dosage: 100 MCG/HOUR TRANSDERMAL PATCH

REACTIONS (3)
  - CARDIAC ARREST [None]
  - DRUG TOXICITY [None]
  - EDUCATIONAL PROBLEM [None]
